FAERS Safety Report 5536882-X (Version None)
Quarter: 2007Q4

REPORT INFORMATION
  Report Type: 
  Country: None (occurrence: None)
  Receive Date: 20071206
  Receipt Date: 20070216
  Transmission Date: 20080405
  Serious: Yes (Hospitalization)
  Sender: FDA-Public Use
  Company Number: US-AMGEN-US211662

PATIENT
  Sex: Female

DRUGS (3)
  1. ENBREL [Suspect]
     Indication: RHEUMATOID ARTHRITIS
     Route: 058
     Dates: start: 20041015
  2. METHOTREXATE [Concomitant]
     Dates: start: 20041001
  3. SULFASALAZINE [Concomitant]
     Dates: start: 20070101

REACTIONS (7)
  - ALOPECIA [None]
  - FEELING HOT [None]
  - GASTROENTERITIS [None]
  - HYPERHIDROSIS [None]
  - PNEUMONIA [None]
  - RED BLOOD CELL SEDIMENTATION RATE INCREASED [None]
  - RHEUMATOID ARTHRITIS [None]
